FAERS Safety Report 9211176 (Version 2)
Quarter: 2013Q2

REPORT INFORMATION
  Report Type: Other
  Country: GB (occurrence: GB)
  Receive Date: 20130404
  Receipt Date: 20130515
  Transmission Date: 20140414
  Serious: Yes (Other)
  Sender: FDA-Public Use
  Company Number: GB-WATSON-2013-05968

PATIENT
  Sex: Male

DRUGS (2)
  1. TEMAZEPAM (UNKNOWN) [Suspect]
     Indication: INSOMNIA
     Dosage: UNK
     Route: 065
  2. RAMIPRIL [Suspect]
     Indication: HYPERTENSION
     Dosage: 5 MG, DAILY
     Route: 065

REACTIONS (19)
  - Renal cancer [Not Recovered/Not Resolved]
  - Renal disorder [Unknown]
  - Brain neoplasm [Unknown]
  - Spermatic cord mass [Unknown]
  - Prostatomegaly [Unknown]
  - Renal pain [Recovered/Resolved]
  - Swelling face [Recovering/Resolving]
  - Pruritus [Recovering/Resolving]
  - Chest discomfort [Recovering/Resolving]
  - Wheezing [Recovering/Resolving]
  - Cough [Recovering/Resolving]
  - Headache [Not Recovered/Not Resolved]
  - Paraesthesia oral [Recovering/Resolving]
  - Vertigo [Recovering/Resolving]
  - Dizziness [Recovering/Resolving]
  - Blood pressure increased [Recovered/Resolved]
  - Drug level increased [Unknown]
  - General physical health deterioration [Recovering/Resolving]
  - Testicular pain [Unknown]
